FAERS Safety Report 5057910-4 (Version None)
Quarter: 2006Q3

REPORT INFORMATION
  Report Type: 
  Country: None (occurrence: None)
  Receive Date: 20060721
  Receipt Date: 20060330
  Transmission Date: 20061208
  Serious: No
  Sender: FDA-Public Use
  Company Number: US-GLAXOSMITHKLINE-A0599797A

PATIENT
  Sex: Female

DRUGS (4)
  1. AVANDIA [Suspect]
     Route: 048
  2. METFORMIN [Suspect]
     Route: 048
  3. AVANDAMET [Concomitant]
     Route: 048
     Dates: start: 20030101
  4. AMARYL [Concomitant]
     Dates: start: 20030101

REACTIONS (1)
  - STOMACH DISCOMFORT [None]
